FAERS Safety Report 25725596 (Version 1)
Quarter: 2025Q3

REPORT INFORMATION
  Report Type: Spontaneous
  Country: GB (occurrence: GB)
  Receive Date: 20250826
  Receipt Date: 20250826
  Transmission Date: 20251020
  Serious: Yes (Other)
  Sender: AUROBINDO
  Company Number: GB-MHRA-TPP27282719C9764295YC1755082110978

PATIENT
  Age: 78 Year
  Sex: Male
  Weight: 72 kg

DRUGS (25)
  1. ATORVASTATIN [Suspect]
     Active Substance: ATORVASTATIN
     Indication: Blood cholesterol increased
     Dosage: 20 MILLIGRAM, ONCE A DAY (ONE TO BE TAKEN DAILY TO LOWER CHOLESTEROL)
     Route: 065
     Dates: start: 20250428, end: 20250813
  2. CLARITHROMYCIN [Concomitant]
     Active Substance: CLARITHROMYCIN
     Indication: Ill-defined disorder
     Dosage: 1 DOSAGE FORM, TWO TIMES A DAY
     Route: 065
     Dates: start: 20250521, end: 20250528
  3. Otomize [Concomitant]
     Indication: Ill-defined disorder
     Route: 065
     Dates: start: 20250521, end: 20250528
  4. EZETIMIBE [Concomitant]
     Active Substance: EZETIMIBE
     Indication: Ill-defined disorder
     Dosage: UNK, ONCE A DAY (TAKE ONE DAILY )
     Route: 065
     Dates: start: 20250613, end: 20250711
  5. APIXABAN [Concomitant]
     Active Substance: APIXABAN
     Indication: Ill-defined disorder
     Dosage: 1 DOSAGE FORM, TWO TIMES A DAY (ONE TABLET  TWICE DAILY, TO PREVENT BLOOD CLOTS)
     Route: 065
     Dates: start: 20250627, end: 20250725
  6. NITROGLYCERIN [Concomitant]
     Active Substance: NITROGLYCERIN
     Indication: Ill-defined disorder
     Route: 065
     Dates: start: 20250708
  7. FUSIDIC ACID [Concomitant]
     Active Substance: FUSIDIC ACID
     Indication: Ill-defined disorder
     Route: 065
     Dates: start: 20250806
  8. NITROFURANTOIN [Concomitant]
     Active Substance: NITROFURANTOIN
     Indication: Ill-defined disorder
     Dosage: 1 DOSAGE FORM, TWO TIMES A DAY (TAKE ONE CAPSULE TWICE DAILY FOR 7 DAYS, TO TRE...)
     Route: 065
     Dates: start: 20250811
  9. AMLODIPINE [Concomitant]
     Active Substance: AMLODIPINE BESYLATE
     Indication: Ill-defined disorder
     Dosage: 1 DOSAGE FORM, ONCE A DAY (1 TABLET ONCE DAILY TO LOWER BLOOD PRESSURE)
     Route: 065
     Dates: start: 20231023
  10. BETAMETHASONE VALERATE [Concomitant]
     Active Substance: BETAMETHASONE VALERATE
     Indication: Ill-defined disorder
     Route: 065
     Dates: start: 20231023
  11. BETNOVATE [Concomitant]
     Active Substance: BETAMETHASONE
     Indication: Ill-defined disorder
     Route: 065
     Dates: start: 20231023
  12. CODEINE PHOSPHATE [Concomitant]
     Active Substance: CODEINE PHOSPHATE
     Indication: Ill-defined disorder
     Dates: start: 20231023
  13. ISOSORBIDE MONONITRATE [Concomitant]
     Active Substance: ISOSORBIDE MONONITRATE
     Indication: Ill-defined disorder
     Route: 065
     Dates: start: 20231023
  14. PANTOPRAZOLE [Concomitant]
     Active Substance: PANTOPRAZOLE
     Indication: Ill-defined disorder
     Dosage: 1 DOSAGE FORM, TWO TIMES A DAY
     Route: 065
     Dates: start: 20231023
  15. POVIDONE-IODINE [Concomitant]
     Active Substance: POVIDONE-IODINE
     Indication: Ill-defined disorder
     Route: 065
     Dates: start: 20231023
  16. RAMIPRIL [Concomitant]
     Active Substance: RAMIPRIL
     Indication: Ill-defined disorder
     Dosage: 1 DOSAGE FORM, ONCE A DAY (ONE CAPSULE ONCE DAILY)
     Route: 065
     Dates: start: 20231023
  17. ALBUTEROL [Concomitant]
     Active Substance: ALBUTEROL
     Indication: Ill-defined disorder
     Dates: start: 20231023
  18. NEBIVOLOL [Concomitant]
     Active Substance: NEBIVOLOL
     Indication: Ill-defined disorder
     Dosage: 1 DOSAGE FORM, TWO TIMES A DAY
     Route: 065
     Dates: start: 20240515, end: 20250807
  19. ELIQUIS [Concomitant]
     Active Substance: APIXABAN
     Indication: Ill-defined disorder
     Dosage: 1 DOSAGE FORM, TWO TIMES A DAY
     Route: 065
     Dates: start: 20240916
  20. SALMETEROL [Concomitant]
     Active Substance: SALMETEROL
     Indication: Ill-defined disorder
     Dosage: 2 DOSAGE FORM, TWO TIMES A DAY (INHALE 2 DOSES TWICE DAILY)
     Dates: start: 20250122
  21. CLOPIDOGREL [Concomitant]
     Active Substance: CLOPIDOGREL BISULFATE
     Indication: Ill-defined disorder
     Dosage: UNK, ONCE A DAY (ONE TO BE TAKEN DAILY)
     Route: 065
     Dates: start: 20250227
  22. CLONAZEPAM [Concomitant]
     Active Substance: CLONAZEPAM
     Indication: Ill-defined disorder
     Route: 065
     Dates: start: 20250414
  23. Kelhale [Concomitant]
     Indication: Ill-defined disorder
     Dosage: UNK, TWO TIMES A DAY (~INHALE TWO PUFFS TWICE DAILY)
     Dates: start: 20250513
  24. BEMPEDOIC ACID [Concomitant]
     Active Substance: BEMPEDOIC ACID
     Indication: Ill-defined disorder
     Dosage: UNK, ONCE A DAY (TAKE ONE DAILY)
     Route: 065
     Dates: start: 20250620, end: 20250707
  25. METOPROLOL TARTRATE [Concomitant]
     Active Substance: METOPROLOL TARTRATE
     Indication: Ill-defined disorder
     Dosage: 1 DOSAGE FORM, 3 TIMES A DAY
     Route: 065
     Dates: start: 20250807

REACTIONS (2)
  - Myalgia [Recovered/Resolved]
  - Muscular weakness [Recovered/Resolved]
